FAERS Safety Report 5131547-0 (Version None)
Quarter: 2006Q4

REPORT INFORMATION
  Report Type: 
  Country: None (occurrence: None)
  Receive Date: 20061020
  Receipt Date: 20061009
  Transmission Date: 20070319
  Serious: Yes (Other)
  Sender: FDA-Public Use
  Company Number: FR-ROCHE-467124

PATIENT
  Age: 88 Year
  Sex: Female

DRUGS (5)
  1. ROCEPHIN [Suspect]
     Route: 030
  2. CIPRALAN [Concomitant]
  3. ASPIRIN [Concomitant]
  4. LEVOTHYROXINE SODIUM [Concomitant]
  5. TANAKAN [Concomitant]

REACTIONS (2)
  - HEART RATE INCREASED [None]
  - HYPOTENSION [None]
